FAERS Safety Report 6910585-9 (Version None)
Quarter: 2010Q3

REPORT INFORMATION
  Report Type: 
  Country: None (occurrence: None)
  Receive Date: 20100806
  Receipt Date: 20100727
  Transmission Date: 20110219
  Serious: Yes (Other)
  Sender: FDA-Public Use
  Company Number: FR-PFIZER INC-2010097174

PATIENT
  Sex: Female

DRUGS (1)
  1. ZYVOX [Suspect]
     Dosage: 2 MG/ML, UNK
     Route: 042

REACTIONS (2)
  - DIABETIC KETOACIDOSIS [None]
  - METABOLIC ACIDOSIS [None]
